FAERS Safety Report 9794361 (Version 2)
Quarter: 2014Q1

REPORT INFORMATION
  Report Type: Spontaneous
  Country: DK (occurrence: DK)
  Receive Date: 20140102
  Receipt Date: 20140102
  Transmission Date: 20141002
  Serious: Yes (Hospitalization, Disabling, Other)
  Sender: FDA-Public Use
  Company Number: DK-BAYER-200931796GPV

PATIENT
  Age: 65 Year
  Sex: Male
  Weight: 79 kg

DRUGS (39)
  1. GADOVIST [Suspect]
     Indication: SCAN WITH CONTRAST
     Dosage: 1 MILLIMOLE (S)/ML
     Route: 042
     Dates: start: 20080221, end: 20080221
  2. OMNISCAN [Suspect]
     Indication: NUCLEAR MAGNETIC RESONANCE IMAGING
     Dosage: 0,5 MILLIMOLE (S)/ML
     Route: 042
     Dates: start: 20010607, end: 20010607
  3. OMNISCAN [Suspect]
     Indication: PERIPHERAL ARTERIAL OCCLUSIVE DISEASE
  4. ALNOK [Concomitant]
     Route: 048
  5. INSULATARD [Concomitant]
     Indication: DIABETES MELLITUS
  6. ISODUR [Concomitant]
     Route: 048
  7. MAGNYL [Concomitant]
  8. MIRTAZAPINE [Concomitant]
  9. NEORECORMON [Concomitant]
  10. PHOS-EX [Concomitant]
  11. PINEX [Concomitant]
  12. PLAVIX [Concomitant]
  13. VENOFER [Concomitant]
     Route: 042
  14. AKARIN [Concomitant]
  15. FURIX [Concomitant]
  16. VITAMIN B-COMPLEX [Concomitant]
  17. PANTOLOC [Concomitant]
  18. ATRAPID [Concomitant]
     Indication: DIABETES MELLITUS
     Route: 058
  19. IMOCLONE [Concomitant]
     Dosage: 7.5 MG
     Route: 048
  20. MOVICOL [Concomitant]
     Route: 048
  21. NITROGLYCERIN [Concomitant]
     Route: 060
  22. SIMVASTATINE [Concomitant]
  23. ALNOK [Concomitant]
     Dosage: 10 MILLIGRAM(S)
     Route: 048
  24. INSULATARD [Concomitant]
  25. ISODUR [Concomitant]
     Route: 048
  26. MAGNYL [ACETYLSALICYLIC ACID] [Concomitant]
  27. NEORECORMON [Concomitant]
  28. PHOS-EX [Concomitant]
  29. PINEX [Concomitant]
  30. PLAVIX [Concomitant]
  31. VENOFER [Concomitant]
     Dosage: 20 MG/ML
     Route: 042
  32. AKARIN [Concomitant]
  33. FURIX [Concomitant]
  34. PANTOLOC [Concomitant]
  35. SIMVASTATIN [Concomitant]
  36. ACTRAPID [Concomitant]
     Route: 058
  37. IMOCLONE [Concomitant]
     Dosage: 7.5 MILLIGRAM(S)
     Route: 048
  38. MOVICOL [Concomitant]
     Route: 048
  39. NITROGLYCERIN [Concomitant]
     Route: 060

REACTIONS (31)
  - Nephrogenic systemic fibrosis [Not Recovered/Not Resolved]
  - Pain [Not Recovered/Not Resolved]
  - Pain in extremity [Not Recovered/Not Resolved]
  - Motor dysfunction [Not Recovered/Not Resolved]
  - Motor dysfunction [Not Recovered/Not Resolved]
  - Gait disturbance [Not Recovered/Not Resolved]
  - Sensory disturbance [Not Recovered/Not Resolved]
  - Myalgia [Not Recovered/Not Resolved]
  - Blister [Not Recovered/Not Resolved]
  - Mobility decreased [Not Recovered/Not Resolved]
  - Skin hypertrophy [Not Recovered/Not Resolved]
  - Skin wound [Not Recovered/Not Resolved]
  - Skin wound [Not Recovered/Not Resolved]
  - Peau d^orange [Not Recovered/Not Resolved]
  - Skin induration [Not Recovered/Not Resolved]
  - Toe amputation [Unknown]
  - Abscess limb [Unknown]
  - Peritonitis [Unknown]
  - Pulmonary oedema [Unknown]
  - Septic shock [Unknown]
  - Pyrexia [Unknown]
  - C-reactive protein increased [Unknown]
  - Blood pressure increased [Unknown]
  - Abdominal pain [Unknown]
  - Ascites [Unknown]
  - Clostridium difficile infection [Unknown]
  - Wound [Unknown]
  - Bacterial test positive [Unknown]
  - Finger amputation [Unknown]
  - Wound [Unknown]
  - Fluid overload [Unknown]
